FAERS Safety Report 10463436 (Version 1)
Quarter: 2014Q3

REPORT INFORMATION
  Report Type: Spontaneous
  Country: US (occurrence: None)
  Receive Date: 20140918
  Receipt Date: 20140918
  Transmission Date: 20150326
  Serious: Yes (Hospitalization)
  Sender: FDA-Public Use
  Company Number: None

PATIENT
  Age: 62 Year
  Sex: Male
  Weight: 78.2 kg

DRUGS (9)
  1. GLIMEPIRIDE. [Concomitant]
     Active Substance: GLIMEPIRIDE
  2. DOFETILIDE [Concomitant]
     Active Substance: DOFETILIDE
  3. SOFOSBUVIR [Suspect]
     Active Substance: SOFOSBUVIR
     Indication: HEPATITIS C
     Dosage: 400  1X DAILY ORAL
     Route: 048
     Dates: start: 20140529
  4. FUROSEMIDE. [Concomitant]
     Active Substance: FUROSEMIDE
  5. HYDROMORPHONE [Concomitant]
     Active Substance: HYDROMORPHONE
  6. SIMEPREVIR 150 MG [Suspect]
     Active Substance: SIMEPREVIR
     Indication: HEPATITIS C
     Dosage: 150  1X DAIY  ORAL
     Route: 048
     Dates: start: 20140529
  7. PROCHLORPERAZINE. [Concomitant]
     Active Substance: PROCHLORPERAZINE
  8. LISINOPRIL. [Concomitant]
     Active Substance: LISINOPRIL
  9. METOPROLOL [Concomitant]
     Active Substance: METOPROLOL

REACTIONS (1)
  - Atrial fibrillation [None]

NARRATIVE: CASE EVENT DATE: 20140626
